FAERS Safety Report 12243226 (Version 1)
Quarter: 2016Q2

REPORT INFORMATION
  Report Type: Spontaneous
  Country: US (occurrence: US)
  Receive Date: 20160406
  Receipt Date: 20160406
  Transmission Date: 20160815
  Serious: No
  Sender: FDA-Public Use
  Company Number: US-SA-2015SA057856

PATIENT
  Age: 36 Year
  Sex: Female

DRUGS (1)
  1. ALLEGRA-D [Suspect]
     Active Substance: FEXOFENADINE\PSEUDOEPHEDRINE
     Indication: SINUS DISORDER
     Dosage: TAKEN FROM: FEW MONTHS AGO?DOSE AND DAILY DOSE: 60 MG/120MG
     Route: 048

REACTIONS (2)
  - Polyp [Not Recovered/Not Resolved]
  - Nasopharyngitis [Not Recovered/Not Resolved]
